FAERS Safety Report 16072293 (Version 1)
Quarter: 2019Q1

REPORT INFORMATION
  Report Type: Spontaneous
  Country: US (occurrence: US)
  Receive Date: 20190314
  Receipt Date: 20190314
  Transmission Date: 20190418
  Serious: Yes (Other)
  Sender: FDA-Public Use
  Company Number: US-NOVOPROD-650491

PATIENT
  Sex: Female

DRUGS (4)
  1. TRESIBA [Suspect]
     Active Substance: INSULIN DEGLUDEC
     Indication: DIABETES MELLITUS
     Dosage: 42 UNITS DAILY AT BEDTIME
     Route: 058
     Dates: start: 2018, end: 2018
  2. TRESIBA [Suspect]
     Active Substance: INSULIN DEGLUDEC
     Dosage: 42 UNITS AT BEDTIME
     Route: 058
     Dates: start: 2018
  3. TRESIBA [Suspect]
     Active Substance: INSULIN DEGLUDEC
     Dosage: 21 IU, TWICE A DAY MORNING AND BEDTIME
     Route: 058
     Dates: start: 201901, end: 20190205
  4. TRESIBA [Suspect]
     Active Substance: INSULIN DEGLUDEC
     Dosage: 21 IU, TWICE A DAY MORNING AND BEDTIME
     Route: 058
     Dates: end: 201901

REACTIONS (10)
  - Hypoaesthesia [Recovered/Resolved]
  - Migraine [Unknown]
  - Off label use [Unknown]
  - Glycosylated haemoglobin increased [Unknown]
  - Abdominal pain [Recovered/Resolved]
  - Arrhythmia [Recovered/Resolved]
  - Paraesthesia [Recovered/Resolved]
  - Blood glucose increased [Recovered/Resolved]
  - Palpitations [Unknown]
  - Vision blurred [Recovered/Resolved]
